FAERS Safety Report 24890553 (Version 1)
Quarter: 2025Q1

REPORT INFORMATION
  Report Type: Report from Study
  Country: CO (occurrence: CO)
  Receive Date: 20250127
  Receipt Date: 20250127
  Transmission Date: 20250408
  Serious: Yes (Other)
  Sender: JOHNSON AND JOHNSON
  Company Number: CO-JNJFOC-20250162945

PATIENT
  Age: 67 Year
  Sex: Female
  Weight: 71 kg

DRUGS (1)
  1. SIMPONI [Suspect]
     Active Substance: GOLIMUMAB
     Indication: Rheumatoid arthritis
     Route: 058
     Dates: start: 20230324

REACTIONS (3)
  - Lithiasis [Unknown]
  - Influenza [Recovering/Resolving]
  - Tonsillitis [Recovering/Resolving]

NARRATIVE: CASE EVENT DATE: 20241101
